FAERS Safety Report 23105702 (Version 1)
Quarter: 2023Q4

REPORT INFORMATION
  Report Type: Spontaneous
  Country: US (occurrence: None)
  Receive Date: 20231023
  Receipt Date: 20231023
  Transmission Date: 20240110
  Serious: Yes (Hospitalization)
  Sender: FDA-Public Use
  Company Number: None

PATIENT
  Age: 78 Year
  Sex: Male

DRUGS (1)
  1. VANCOMYCIN HYDROCHLORIDE [Suspect]
     Active Substance: VANCOMYCIN HYDROCHLORIDE
     Dosage: FREQUENCY : ONCE;?
     Route: 042
     Dates: start: 20230325, end: 20230328

REACTIONS (3)
  - Pruritus [None]
  - Urticaria [None]
  - SARS-CoV-2 test positive [None]
